FAERS Safety Report 8317396-0 (Version None)
Quarter: 2012Q1

REPORT INFORMATION
  Report Type: 
  Country: None (occurrence: None)
  Receive Date: 20120315
  Receipt Date: 20110119
  Transmission Date: 20120608
  Serious: Yes (Other)
  Sender: FDA-Public Use
  Company Number: PHHY2011US04562

PATIENT
  Age: 54 Year
  Sex: Female

DRUGS (4)
  1. GILENYA [Suspect]
     Indication: RELAPSING-REMITTING MULTIPLE SCLEROSIS
     Dosage: 0.5 MG, QD, ORAL
     Route: 048
     Dates: start: 20110105, end: 20110114
  2. AMBEIN CR (ZOLPIDEM TARTRAE) [Concomitant]
  3. NORVASC [Concomitant]
  4. GABAPENTIN [Suspect]

REACTIONS (2)
  - HEADACHE [None]
  - HYPERTENSION [None]
